FAERS Safety Report 4294773-9 (Version None)
Quarter: 2004Q1

REPORT INFORMATION
  Report Type: 
  Country: None (occurrence: None)
  Receive Date: 20040213
  Receipt Date: 20020516
  Transmission Date: 20041129
  Serious: Yes (Disabling)
  Sender: FDA-Public Use
  Company Number: WAES 0205USA02043

PATIENT
  Age: 59 Year
  Sex: Male
  Weight: 108 kg

DRUGS (9)
  1. CIMETIDINE HCL [Concomitant]
  2. FLEXERIL [Concomitant]
     Indication: BACK PAIN
  3. CARDIZEM [Concomitant]
     Indication: HYPERTENSION
  4. MICRONASE [Concomitant]
     Indication: DIABETES MELLITUS
  5. IBUPROFEN [Concomitant]
     Indication: BACK PAIN
  6. PRINIVIL [Concomitant]
  7. METFORMIN [Concomitant]
     Indication: DIABETES MELLITUS
  8. PRAVACHOL [Concomitant]
  9. VIOXX [Suspect]
     Indication: BACK INJURY
     Route: 048
     Dates: start: 20010501, end: 20010601

REACTIONS (14)
  - ANXIETY [None]
  - ARRHYTHMIA [None]
  - BACK PAIN [None]
  - CEREBROVASCULAR ACCIDENT [None]
  - CORONARY ARTERY DISEASE [None]
  - DEPRESSION [None]
  - DISTURBANCE IN ATTENTION [None]
  - DIZZINESS [None]
  - HYPERTENSION [None]
  - INJURY [None]
  - INTERVERTEBRAL DISC DISORDER [None]
  - MANIA [None]
  - RADICULOPATHY [None]
  - SLEEP DISORDER [None]
